FAERS Safety Report 16898101 (Version 1)
Quarter: 2019Q4

REPORT INFORMATION
  Report Type: Spontaneous
  Country: US (occurrence: US)
  Receive Date: 20191009
  Receipt Date: 20191009
  Transmission Date: 20200122
  Serious: Yes (Hospitalization, Other)
  Sender: FDA-Public Use
  Company Number: US-PFIZER INC-2019430000

PATIENT
  Sex: Female
  Weight: 95 kg

DRUGS (1)
  1. ESTRING [Suspect]
     Active Substance: ESTRADIOL
     Indication: URINARY TRACT INFECTION
     Dosage: UNK
     Route: 067

REACTIONS (15)
  - Electrolyte imbalance [Recovered/Resolved]
  - Vaginal haemorrhage [Recovered/Resolved]
  - Condition aggravated [Recovered/Resolved]
  - Drug ineffective for unapproved indication [Unknown]
  - Off label use [Unknown]
  - Blood urine [Unknown]
  - Sinusitis [Recovered/Resolved]
  - Vaginal odour [Recovered/Resolved]
  - Blood pressure abnormal [Recovered/Resolved]
  - Confusional state [Recovered/Resolved]
  - Pyrexia [Recovered/Resolved]
  - Vaginal infection [Unknown]
  - Incorrect product administration duration [Unknown]
  - Ear infection [Recovered/Resolved]
  - Sepsis [Recovering/Resolving]

NARRATIVE: CASE EVENT DATE: 201902
